FAERS Safety Report 9407534 (Version 4)
Quarter: 2013Q3

REPORT INFORMATION
  Report Type: Spontaneous
  Country: JP (occurrence: JP)
  Receive Date: 20130718
  Receipt Date: 20130912
  Transmission Date: 20140515
  Serious: Yes (Hospitalization)
  Sender: FDA-Public Use
  Company Number: JP-B.I. PHARMACEUTICALS,INC./RIDGEFIELD-2013-BI-20473NB

PATIENT
  Age: 81 Year
  Sex: Female
  Weight: 55.7 kg

DRUGS (6)
  1. PRAZAXA [Suspect]
     Indication: THROMBOSIS PROPHYLAXIS
     Dosage: 220 MG
     Route: 048
     Dates: start: 20121226, end: 20130710
  2. DIOVAN [Concomitant]
     Indication: HYPERTENSION
     Dosage: 1DF
     Route: 048
     Dates: start: 20050426, end: 20130710
  3. SUNRYTHM [Concomitant]
     Indication: ARRHYTHMIA
     Dosage: 2DF
     Route: 048
     Dates: start: 20121024, end: 20130710
  4. LANIRAPID [Concomitant]
     Indication: ATRIAL FIBRILLATION
     Dosage: 0.5DF
     Route: 048
     Dates: start: 20130130
  5. ANISTADIN [Concomitant]
     Dosage: 1DF
     Route: 048
     Dates: start: 20050426, end: 20130710
  6. CARDENALIN [Concomitant]
     Indication: HYPERTENSION
     Route: 048
     Dates: start: 20050426, end: 20130710

REACTIONS (4)
  - Dehydration [Not Recovered/Not Resolved]
  - Decreased appetite [Not Recovered/Not Resolved]
  - Renal disorder [Recovered/Resolved]
  - Heat illness [Not Recovered/Not Resolved]
